FAERS Safety Report 6421399-0 (Version None)
Quarter: 2009Q4

REPORT INFORMATION
  Report Type: 
  Country: None (occurrence: None)
  Receive Date: 20091030
  Receipt Date: 20091027
  Transmission Date: 20100525
  Serious: Yes (Other)
  Sender: FDA-Public Use
  Company Number: JP-BAYER-200911764BYL

PATIENT
  Age: 74 Year
  Sex: Male
  Weight: 60 kg

DRUGS (3)
  1. NEXAVAR [Suspect]
     Indication: RENAL CELL CARCINOMA STAGE IV
     Dosage: UNIT DOSE: 200 MG
     Route: 048
     Dates: start: 20090415, end: 20090521
  2. NEXAVAR [Suspect]
     Dosage: UNIT DOSE: 200 MG
     Route: 048
     Dates: start: 20090625
  3. NEXAVAR [Suspect]
     Dosage: UNIT DOSE: 200 MG
     Route: 048
     Dates: start: 20090707

REACTIONS (3)
  - ALOPECIA [None]
  - HEPATIC FUNCTION ABNORMAL [None]
  - HYPERTENSION [None]
